FAERS Safety Report 12634477 (Version 1)
Quarter: 2016Q3

REPORT INFORMATION
  Report Type: Spontaneous
  Country: SI (occurrence: SI)
  Receive Date: 20160808
  Receipt Date: 20160808
  Transmission Date: 20161109
  Serious: Yes (Other)
  Sender: FDA-Public Use
  Company Number: SI-ASTRAZENECA-2016SE83194

PATIENT

DRUGS (1)
  1. QUETIAPINE. [Suspect]
     Active Substance: QUETIAPINE
     Dosage: 2400.0MG UNKNOWN
     Route: 048

REACTIONS (3)
  - Sinus tachycardia [Unknown]
  - Hypotension [Unknown]
  - Overdose [Unknown]
